FAERS Safety Report 6464272-4 (Version None)
Quarter: 2009Q4

REPORT INFORMATION
  Report Type: 
  Country: None (occurrence: None)
  Receive Date: 20091201
  Receipt Date: 20091118
  Transmission Date: 20100525
  Serious: Yes (Disabling)
  Sender: FDA-Public Use
  Company Number: IN-B.I. PHARMACEUTICALS,INC./RIDGEFIELD-2009-DE-07181GD

PATIENT
  Sex: Female
  Weight: 2.5 kg

DRUGS (9)
  1. RANITIDINE [Suspect]
     Indication: DRUG EXPOSURE DURING PREGNANCY
     Route: 064
  2. DICYCLOMINE [Suspect]
     Indication: DRUG EXPOSURE DURING PREGNANCY
     Route: 064
  3. METRONIDAZOLE [Suspect]
     Indication: DRUG EXPOSURE DURING PREGNANCY
     Route: 064
  4. IRON PREPARATIONS [Suspect]
     Indication: DRUG EXPOSURE DURING PREGNANCY
     Route: 064
  5. ZINC PREPARATIONS [Suspect]
     Indication: DRUG EXPOSURE DURING PREGNANCY
     Route: 064
  6. NORFLOXACIN [Suspect]
     Indication: DRUG EXPOSURE DURING PREGNANCY
     Route: 064
  7. AMINOCAPROIC ACID [Suspect]
     Indication: DRUG EXPOSURE DURING PREGNANCY
     Route: 064
  8. UTERINE RELAXANTS [Suspect]
     Indication: DRUG EXPOSURE DURING PREGNANCY
     Route: 064
  9. ANTIEMETICS [Suspect]
     Indication: DRUG EXPOSURE DURING PREGNANCY
     Route: 064

REACTIONS (3)
  - AMNIOTIC BAND SYNDROME [None]
  - LIMB DEFORMITY [None]
  - LIMB TRAUMATIC AMPUTATION [None]
